FAERS Safety Report 7218149-7 (Version None)
Quarter: 2010Q4

REPORT INFORMATION
  Report Type: 
  Country: None (occurrence: None)
  Receive Date: 20101126
  Receipt Date: 20100928
  Transmission Date: 20110411
  Serious: No
  Sender: FDA-Public Use
  Company Number: 315624

PATIENT
  Sex: Female

DRUGS (2)
  1. VICTOZA [Suspect]
     Indication: DIABETES MELLITUS
     Dosage: SINGLE DOSE, SUBCUTANEOUS
     Route: 058
     Dates: start: 20100101, end: 20100101
  2. METFORMIN HCL [Concomitant]

REACTIONS (4)
  - ARRHYTHMIA [None]
  - DIARRHOEA [None]
  - IMPAIRED GASTRIC EMPTYING [None]
  - NAUSEA [None]
